FAERS Safety Report 10444400 (Version 1)
Quarter: 2014Q3

REPORT INFORMATION
  Report Type: Spontaneous
  Country: US (occurrence: None)
  Receive Date: 20140909
  Receipt Date: 20140909
  Transmission Date: 20150326
  Serious: No
  Sender: FDA-Public Use
  Company Number: None

PATIENT
  Age: 35 Year
  Sex: Male
  Weight: 83.46 kg

DRUGS (2)
  1. DULOXETINE HCL 60 MG SUN PHARMA GLOB [Suspect]
     Active Substance: DULOXETINE HYDROCHLORIDE
     Indication: DEPRESSION
     Dosage: 1 CAPSULE DAILY BY MOUTH
     Route: 048
     Dates: start: 2013, end: 2013
  2. KLONOPIN [Concomitant]
     Active Substance: CLONAZEPAM

REACTIONS (1)
  - Chest pain [None]

NARRATIVE: CASE EVENT DATE: 2013
